FAERS Safety Report 17591341 (Version 4)
Quarter: 2020Q2

REPORT INFORMATION
  Report Type: Report from Study
  Country: US (occurrence: US)
  Receive Date: 20200327
  Receipt Date: 20200618
  Transmission Date: 20200713
  Serious: Yes (Hospitalization)
  Sender: FDA-Public Use
  Company Number: US-EISAI MEDICAL RESEARCH-EC-2020-072153

PATIENT
  Age: 57 Year
  Sex: Male
  Weight: 67.9 kg

DRUGS (30)
  1. LENVIMA [Suspect]
     Active Substance: LENVATINIB
     Route: 048
     Dates: start: 20200605
  2. METHYLPHENIDATE. [Concomitant]
     Active Substance: METHYLPHENIDATE
  3. TERBINAFINE. [Concomitant]
     Active Substance: TERBINAFINE
  4. HYDRALAZINE [Concomitant]
     Active Substance: HYDRALAZINE HYDROCHLORIDE
  5. ERLOTINIB [Concomitant]
     Active Substance: ERLOTINIB
  6. PEPCID [Concomitant]
     Active Substance: FAMOTIDINE
  7. LENVIMA [Suspect]
     Active Substance: LENVATINIB
     Indication: RENAL CELL CARCINOMA
     Route: 048
     Dates: start: 2020, end: 202005
  8. LENVIMA [Suspect]
     Active Substance: LENVATINIB
     Dosage: REPORTED AS DOSE REDUCED (UNKNOWN DOSE).
     Route: 048
     Dates: start: 202005, end: 2020
  9. TAMSULOSIN [Concomitant]
     Active Substance: TAMSULOSIN
  10. METOPROLOL. [Concomitant]
     Active Substance: METOPROLOL
  11. TUMS ULTRA [Concomitant]
     Active Substance: CALCIUM CARBONATE
  12. DENTA 5000 PLUS [Concomitant]
     Active Substance: SODIUM FLUORIDE
  13. AUGMENTIN [Concomitant]
     Active Substance: AMOXICILLIN\CLAVULANATE POTASSIUM
  14. BROMPHENIRAMINE-PSEUDO [Concomitant]
  15. PANTOPRAZOLE [Concomitant]
     Active Substance: PANTOPRAZOLE
  16. METRONIDAZOLE. [Concomitant]
     Active Substance: METRONIDAZOLE
  17. VITAMIN D3 [Concomitant]
     Active Substance: CHOLECALCIFEROL
  18. ENEMA (SODIUM PHOSPHATE, DIBASIC\SODIUM PHOSPHATE, MONOBASIC) [Concomitant]
     Active Substance: SODIUM PHOSPHATE, DIBASIC\SODIUM PHOSPHATE, MONOBASIC
  19. HYDROMORPHONE [Concomitant]
     Active Substance: HYDROMORPHONE
  20. SYNTHROID [Concomitant]
     Active Substance: LEVOTHYROXINE SODIUM
  21. DOXYCYCLINE HYCLATE. [Concomitant]
     Active Substance: DOXYCYCLINE HYCLATE
  22. CLINDAMYCIN PHOSPHATE. [Concomitant]
     Active Substance: CLINDAMYCIN PHOSPHATE
  23. LENVIMA [Suspect]
     Active Substance: LENVATINIB
     Indication: RENAL CANCER
     Route: 048
     Dates: start: 20200313, end: 20200322
  24. LENVIMA [Suspect]
     Active Substance: LENVATINIB
     Route: 048
     Dates: start: 2020, end: 2020
  25. AFINITOR [Suspect]
     Active Substance: EVEROLIMUS
     Indication: PRODUCT USED FOR UNKNOWN INDICATION
     Dosage: UNKNOWN DOSE AND FREQUENCY
  26. ONDANSETRON [Concomitant]
     Active Substance: ONDANSETRON
  27. LACTULOSE. [Concomitant]
     Active Substance: LACTULOSE
  28. CALCIUM CARBONATE. [Concomitant]
     Active Substance: CALCIUM CARBONATE
  29. OXYBUTIN [Concomitant]
     Active Substance: OXYBUTYNIN
  30. FLUOCINOLONE ACETONIDE. [Concomitant]
     Active Substance: FLUOCINOLONE ACETONIDE

REACTIONS (13)
  - Fatigue [Unknown]
  - Decreased appetite [Unknown]
  - Dizziness [Unknown]
  - Diarrhoea [Unknown]
  - Vomiting [Unknown]
  - Dysphagia [Unknown]
  - Pneumonia [Unknown]
  - Asthenia [Unknown]
  - Blood pressure increased [Recovered/Resolved]
  - Headache [Unknown]
  - Lymphadenopathy [Unknown]
  - Dysphonia [Unknown]
  - Spinal operation [Unknown]

NARRATIVE: CASE EVENT DATE: 202003
